FAERS Safety Report 15388473 (Version 2)
Quarter: 2018Q4

REPORT INFORMATION
  Report Type: Spontaneous
  Country: CA (occurrence: CA)
  Receive Date: 20180915
  Receipt Date: 20181120
  Transmission Date: 20190204
  Serious: Yes (Other)
  Sender: FDA-Public Use
  Company Number: CA-009507513-1809CAN001987

PATIENT
  Sex: Female
  Weight: 90.2 kg

DRUGS (12)
  1. CHLORTHALIDONE. [Concomitant]
     Active Substance: CHLORTHALIDONE
     Dosage: UNK
     Dates: start: 201701
  2. GLUCOSAMINE [Concomitant]
     Active Substance: GLUCOSAMINE
  3. EZETROL [Suspect]
     Active Substance: EZETIMIBE
     Route: 048
  4. VITAMINS (UNSPECIFIED) [Concomitant]
     Active Substance: VITAMINS
  5. ERGOCALCIFEROL. [Concomitant]
     Active Substance: ERGOCALCIFEROL
  6. REPATHA [Suspect]
     Active Substance: EVOLOCUMAB
     Indication: ARTERIOSCLEROSIS
     Dosage: 140 MG/ML /SINGLE DOSE PREFILLED SYRINGE
     Route: 065
     Dates: start: 20161114
  7. REPATHA [Suspect]
     Active Substance: EVOLOCUMAB
     Indication: ARTERIOSCLEROSIS
     Dosage: 140 MG/ML, QMO/SINGLE DOSE PREFILLED AUTOINJECTOR
     Route: 058
     Dates: start: 20180120
  8. ASPIRIN. [Concomitant]
     Active Substance: ASPIRIN
  9. REPATHA [Suspect]
     Active Substance: EVOLOCUMAB
     Indication: HYPERCHOLESTEROLAEMIA
  10. WARFARIN [Concomitant]
     Active Substance: WARFARIN
  11. REPATHA [Suspect]
     Active Substance: EVOLOCUMAB
     Indication: HYPERCHOLESTEROLAEMIA
     Dosage: 140 MG, Q2WK
     Route: 058
     Dates: start: 201701
  12. VITAMIN B COMPLEX [Concomitant]
     Active Substance: CYANOCOBALAMIN\DEXPANTHENOL\NIACINAMIDE\PYRIDOXINE HYDROCHLORIDE\RIBOFLAVIN 5^-PHOSPHATE SODIUM\THIAMINE HYDROCHLORIDE\VITAMIN B COMPLEX

REACTIONS (6)
  - Sciatica [Unknown]
  - Drug intolerance [Not Recovered/Not Resolved]
  - Osteoarthritis [Unknown]
  - Myalgia [Recovering/Resolving]
  - Injection site pain [Not Recovered/Not Resolved]
  - Muscle spasms [Not Recovered/Not Resolved]

NARRATIVE: CASE EVENT DATE: 2017
